FAERS Safety Report 7601797-X (Version None)
Quarter: 2011Q3

REPORT INFORMATION
  Report Type: 
  Country: None (occurrence: None)
  Receive Date: 20110711
  Receipt Date: 20110707
  Transmission Date: 20111222
  Serious: Yes (Other)
  Sender: FDA-Public Use
  Company Number: CA-B.I. PHARMACEUTICALS,INC./RIDGEFIELD-2011-CN-00913CN

PATIENT
  Age: 85 Year
  Sex: Male

DRUGS (2)
  1. LASIX [Concomitant]
     Indication: CARDIAC FAILURE
     Dosage: 120 MG
  2. PRADAXA [Suspect]
     Indication: ATRIAL FIBRILLATION
     Dosage: 220 MG
     Dates: start: 20101201, end: 20110617

REACTIONS (1)
  - CARDIAC FAILURE [None]
